FAERS Safety Report 12995180 (Version 2)
Quarter: 2016Q4

REPORT INFORMATION
  Report Type: Spontaneous
  Country: JP (occurrence: JP)
  Receive Date: 20161202
  Receipt Date: 20161212
  Transmission Date: 20170207
  Serious: Yes (Hospitalization)
  Sender: FDA-Public Use
  Company Number: JP-SA-2016SA038734

PATIENT
  Sex: Male
  Weight: 47 kg

DRUGS (3)
  1. TAXOTERE [Suspect]
     Active Substance: DOCETAXEL
     Indication: PROSTATE CANCER
     Dosage: FREQUENCY:Q4W
     Route: 042
     Dates: start: 20150120, end: 20150120
  2. DECADRON [Concomitant]
     Active Substance: DEXAMETHASONE
     Indication: PROSTATE CANCER
     Route: 065
     Dates: start: 20150120, end: 20150120
  3. DECADRON [Concomitant]
     Active Substance: DEXAMETHASONE
     Indication: PROSTATE CANCER
     Route: 065
     Dates: start: 20140227, end: 20150422

REACTIONS (1)
  - Restlessness [Recovering/Resolving]

NARRATIVE: CASE EVENT DATE: 20150130
